FAERS Safety Report 17545007 (Version 1)
Quarter: 2020Q1

REPORT INFORMATION
  Report Type: Spontaneous
  Country: US (occurrence: US)
  Receive Date: 20190430
  Receipt Date: 20190430
  Transmission Date: 20200409
  Serious: Yes (Hospitalization)
  Sender: FDA-Public Use
  Company Number: None

PATIENT
  Age: 21 Year
  Sex: Female

DRUGS (2)
  1. JUUL (DEVICE\NICOTINE) [Suspect]
     Active Substance: DEVICE\NICOTINE
     Dates: start: 20190130
  2. VAPING MARIJUANA [Suspect]
     Active Substance: CANNABIS SATIVA SUBSP. INDICA TOP\DEVICE

REACTIONS (5)
  - Panic attack [None]
  - Seizure [None]
  - Loss of consciousness [None]
  - Unresponsive to stimuli [None]
  - Musculoskeletal stiffness [None]
